FAERS Safety Report 5059908-9 (Version None)
Quarter: 2006Q3

REPORT INFORMATION
  Report Type: 
  Country: None (occurrence: None)
  Receive Date: 20060718
  Receipt Date: 20060630
  Transmission Date: 20061208
  Serious: Yes (Death, Other)
  Sender: FDA-Public Use
  Company Number: US200607000374

PATIENT
  Age: 39 Year
  Sex: Male

DRUGS (1)
  1. CIALIS [Suspect]
     Indication: ERECTILE DYSFUNCTION
     Dosage: 40 MG

REACTIONS (4)
  - COMPLETED SUICIDE [None]
  - INCORRECT DOSE ADMINISTERED [None]
  - OVERDOSE [None]
  - PRIAPISM [None]
